FAERS Safety Report 21103735 (Version 1)
Quarter: 2022Q3

REPORT INFORMATION
  Report Type: Spontaneous
  Country: CN (occurrence: CN)
  Receive Date: 20220720
  Receipt Date: 20220720
  Transmission Date: 20221027
  Serious: Yes (Hospitalization)
  Sender: FDA-Public Use
  Company Number: CN-BEIGENE USA INC-BGN-2022-007574

PATIENT

DRUGS (5)
  1. BRUKINSA [Suspect]
     Active Substance: ZANUBRUTINIB
     Indication: Mantle cell lymphoma
     Dosage: 160 MILLIGRAM, BID
     Route: 048
     Dates: start: 20220218, end: 20220308
  2. LENALIDOMIDE [Suspect]
     Active Substance: LENALIDOMIDE
     Indication: Mantle cell lymphoma
     Dosage: 25 MILLIGRAM, QD
     Route: 048
     Dates: start: 20220218, end: 20220223
  3. CYTARABINE HYDROCHLORIDE [Suspect]
     Active Substance: CYTARABINE HYDROCHLORIDE
     Indication: Mantle cell lymphoma
     Dosage: 0.5 GRAM, QD
     Route: 041
     Dates: start: 20220218, end: 20220219
  4. BORTEZOMIB [Suspect]
     Active Substance: BORTEZOMIB
     Indication: Mantle cell lymphoma
     Dosage: 2 MILLIGRAM, QWK
     Route: 041
     Dates: start: 20220218, end: 20220228
  5. BENDAMUSTINE [Concomitant]
     Active Substance: BENDAMUSTINE
     Indication: Mantle cell lymphoma
     Dosage: UNK
     Route: 065
     Dates: start: 20220218

REACTIONS (1)
  - Myelosuppression [Not Recovered/Not Resolved]

NARRATIVE: CASE EVENT DATE: 20220221
